FAERS Safety Report 23079346 (Version 6)
Quarter: 2024Q4

REPORT INFORMATION
  Report Type: Spontaneous
  Country: JP (occurrence: JP)
  Receive Date: 20231018
  Receipt Date: 20241122
  Transmission Date: 20250115
  Serious: Yes (Other)
  Sender: CSL BEHRING
  Company Number: JP-BEH-2023164368

PATIENT
  Age: 5 Decade
  Sex: Female

DRUGS (9)
  1. BERINERT [Suspect]
     Active Substance: HUMAN C1-ESTERASE INHIBITOR
     Indication: Abdominal pain
     Route: 065
  2. BERINERT [Suspect]
     Active Substance: HUMAN C1-ESTERASE INHIBITOR
     Indication: Abdominal pain
     Route: 065
  3. BERINERT [Suspect]
     Active Substance: HUMAN C1-ESTERASE INHIBITOR
     Indication: Hereditary angioedema
     Dosage: UNK
     Route: 065
  4. BERINERT [Suspect]
     Active Substance: HUMAN C1-ESTERASE INHIBITOR
     Indication: Hereditary angioedema
     Dosage: UNK
     Route: 065
  5. BERINERT [Suspect]
     Active Substance: HUMAN C1-ESTERASE INHIBITOR
     Indication: Prophylaxis
     Dosage: 3600 INTERNATIONAL UNIT, 60 INTERNATIONAL UNITS/KG, BIW
     Route: 058
     Dates: start: 20230225
  6. BERINERT [Suspect]
     Active Substance: HUMAN C1-ESTERASE INHIBITOR
     Indication: Hereditary angioedema
  7. ICATIBANT ACETATE [Concomitant]
     Active Substance: ICATIBANT ACETATE
     Indication: Hereditary angioedema
     Dosage: UNK
  8. TRANEXAMIC ACID [Concomitant]
     Active Substance: TRANEXAMIC ACID
     Indication: Hereditary angioedema with C1 esterase inhibitor deficiency
     Dosage: UNK
     Route: 048
  9. BEROTRALSTAT [Concomitant]
     Active Substance: BEROTRALSTAT

REACTIONS (39)
  - Hereditary angioedema [Recovered/Resolved]
  - Oedema peripheral [Recovered/Resolved]
  - Malaise [Recovered/Resolved]
  - Nausea [Recovered/Resolved]
  - Hereditary angioedema [Recovered/Resolved]
  - Abdominal pain [Recovered/Resolved]
  - Oedema peripheral [Recovered/Resolved]
  - Hereditary angioedema [Recovered/Resolved]
  - Abdominal pain [Recovered/Resolved]
  - Oedema peripheral [Recovered/Resolved]
  - Hereditary angioedema [Unknown]
  - Oedema peripheral [Unknown]
  - Hereditary angioedema [Unknown]
  - Oedema [Unknown]
  - Hereditary angioedema [Unknown]
  - Oedema peripheral [Unknown]
  - Hereditary angioedema [Unknown]
  - Oedema [Unknown]
  - Hereditary angioedema [Unknown]
  - Oedema [Unknown]
  - Oedema peripheral [Unknown]
  - Hereditary angioedema [Unknown]
  - Oedema peripheral [Unknown]
  - Hereditary angioedema [Unknown]
  - Abdominal pain [Unknown]
  - Malaise [Unknown]
  - Hereditary angioedema [Unknown]
  - Hereditary angioedema [Unknown]
  - Hereditary angioedema [Unknown]
  - Hereditary angioedema [Unknown]
  - Nausea [Unknown]
  - Abdominal pain [Unknown]
  - Laryngeal discomfort [Unknown]
  - Loss of personal independence in daily activities [Recovered/Resolved]
  - Fatigue [Recovered/Resolved]
  - Feeling abnormal [Recovered/Resolved]
  - Fear [Recovered/Resolved]
  - Emotional distress [Recovered/Resolved]
  - Feeding disorder [Recovered/Resolved]
